FAERS Safety Report 17802176 (Version 1)
Quarter: 2020Q2

REPORT INFORMATION
  Report Type: Spontaneous
  Country: US (occurrence: US)
  Receive Date: 20200518
  Receipt Date: 20200518
  Transmission Date: 20200714
  Serious: No
  Sender: FDA-Public Use
  Company Number: None

PATIENT
  Age: 6 Year
  Sex: Male
  Weight: 27 kg

DRUGS (1)
  1. MONTELUKAST [Suspect]
     Active Substance: MONTELUKAST SODIUM
     Indication: ASTHMA
     Dosage: ?          QUANTITY:1 TABLET(S);?
     Route: 048
     Dates: start: 20180815, end: 20200301

REACTIONS (6)
  - Attention deficit hyperactivity disorder [None]
  - Anxiety [None]
  - Enuresis [None]
  - Anger [None]
  - Autism spectrum disorder [None]
  - Sensory processing disorder [None]

NARRATIVE: CASE EVENT DATE: 20181201
